FAERS Safety Report 4954980-6 (Version None)
Quarter: 2006Q1

REPORT INFORMATION
  Report Type: 
  Country: None (occurrence: None)
  Receive Date: 20060327
  Receipt Date: 20060321
  Transmission Date: 20060701
  Serious: Yes (Other)
  Sender: FDA-Public Use
  Company Number: GB-SANOFI-SYNTHELABO-A01200602229

PATIENT
  Age: 59 Year
  Sex: Female
  Weight: 72.5 kg

DRUGS (3)
  1. OXALIPLATIN [Suspect]
     Indication: COLORECTAL CANCER
     Route: 042
     Dates: start: 20060221, end: 20060221
  2. INHALERS NOS [Concomitant]
     Dosage: UNK
     Route: 065
  3. STERIOIDS NOS [Concomitant]
     Dosage: UNK
     Route: 065

REACTIONS (6)
  - BRONCHOSPASM [None]
  - DYSPNOEA [None]
  - LARYNGOSPASM [None]
  - NEUROPATHY PERIPHERAL [None]
  - PANIC ATTACK [None]
  - WHEEZING [None]
